FAERS Safety Report 12559785 (Version 1)
Quarter: 2016Q3

REPORT INFORMATION
  Report Type: Spontaneous
  Country: US (occurrence: None)
  Receive Date: 20160714
  Receipt Date: 20160714
  Transmission Date: 20161109
  Serious: Yes (Hospitalization)
  Sender: FDA-Public Use
  Company Number: None

PATIENT
  Age: 51 Year
  Sex: Female
  Weight: 65.77 kg

DRUGS (14)
  1. ADVAIR HFA [Concomitant]
     Active Substance: FLUTICASONE PROPIONATE\SALMETEROL XINAFOATE
  2. PANTOPRAZOLE [Concomitant]
     Active Substance: PANTOPRAZOLE SODIUM
  3. BENADRYL [Concomitant]
     Active Substance: DIPHENHYDRAMINE HYDROCHLORIDE
  4. AMITRIPTYLINE [Concomitant]
     Active Substance: AMITRIPTYLINE
  5. MORPHINE ER [Concomitant]
     Active Substance: MORPHINE
  6. FENTANYL. [Suspect]
     Active Substance: FENTANYL
     Indication: ARTHROPATHY
     Dosage: 1 PATCH (ES) EVERY 3 DAYS APPLIED AS MEDICATED PATCH TO SKIN
     Dates: end: 20160113
  7. MUCINEX [Concomitant]
     Active Substance: GUAIFENESIN
  8. FENTANYL. [Suspect]
     Active Substance: FENTANYL
     Indication: INTERVERTEBRAL DISC DISORDER
     Dosage: 1 PATCH (ES) EVERY 3 DAYS APPLIED AS MEDICATED PATCH TO SKIN
     Dates: end: 20160113
  9. OXYCODONE [Concomitant]
     Active Substance: OXYCODONE
  10. FENTANYL. [Suspect]
     Active Substance: FENTANYL
     Indication: ARTHRITIS
     Dosage: 1 PATCH (ES) EVERY 3 DAYS APPLIED AS MEDICATED PATCH TO SKIN
     Dates: end: 20160113
  11. ASTRIZINICA [Concomitant]
  12. GABPENTIN [Concomitant]
  13. NEBULIZER [Concomitant]
     Active Substance: DEVICE
  14. PROAIR HFA [Concomitant]
     Active Substance: ALBUTEROL SULFATE

REACTIONS (5)
  - Dyspnoea [None]
  - Chronic obstructive pulmonary disease [None]
  - Tremor [None]
  - Panic attack [None]
  - Heart rate increased [None]

NARRATIVE: CASE EVENT DATE: 20160307
